FAERS Safety Report 6444233-1 (Version None)
Quarter: 2009Q4

REPORT INFORMATION
  Report Type: 
  Country: None (occurrence: None)
  Receive Date: 20091118
  Receipt Date: 20091110
  Transmission Date: 20100525
  Serious: Yes (Other)
  Sender: FDA-Public Use
  Company Number: IT-ROCHE-667658

PATIENT
  Sex: Female

DRUGS (2)
  1. TAMIFLU [Suspect]
     Dosage: FREQUENCY REPORTED AS DAILY
     Route: 048
     Dates: start: 20091104, end: 20091105
  2. LEVOFLOXACIN [Concomitant]
     Indication: DRUG USE FOR UNKNOWN INDICATION

REACTIONS (2)
  - AGITATION [None]
  - PANIC ATTACK [None]
